FAERS Safety Report 12157619 (Version 3)
Quarter: 2016Q2

REPORT INFORMATION
  Report Type: Spontaneous
  Country: US (occurrence: US)
  Receive Date: 20160308
  Receipt Date: 20160407
  Transmission Date: 20160815
  Serious: Yes (Other)
  Sender: FDA-Public Use
  Company Number: US-BAUSCH-BL-2016-005320

PATIENT
  Age: 66 Year
  Sex: Female

DRUGS (2)
  1. PRED FORTE [Concomitant]
     Active Substance: PREDNISOLONE ACETATE
     Indication: CORNEAL DYSTROPHY
     Dosage: 1 DROP INTO RIGHT EYE ONCE EVERY MORNING
     Route: 047
  2. MURO 128 [Suspect]
     Active Substance: SODIUM CHLORIDE
     Indication: CORNEAL DYSTROPHY
     Dosage: 1 APPLICATION TO THE RIGHT EYE NIGHTLY AT BEDTIME
     Route: 047
     Dates: start: 20160205

REACTIONS (4)
  - Blood pressure increased [Recovered/Resolved]
  - Corneal dystrophy [Recovered/Resolved]
  - Condition aggravated [Recovered/Resolved]
  - Tension headache [Recovered/Resolved]

NARRATIVE: CASE EVENT DATE: 201602
